FAERS Safety Report 23252919 (Version 2)
Quarter: 2023Q4

REPORT INFORMATION
  Report Type: Report from Study
  Country: US (occurrence: US)
  Receive Date: 20231201
  Receipt Date: 20231207
  Transmission Date: 20240110
  Serious: Yes (Hospitalization)
  Sender: FDA-Public Use
  Company Number: US-GILEAD-2023-0652590

PATIENT
  Sex: Female
  Weight: 78 kg

DRUGS (3)
  1. SACITUZUMAB GOVITECAN-HZIY [Suspect]
     Active Substance: SACITUZUMAB GOVITECAN-HZIY
     Indication: Neoplasm
     Dosage: 554.3 MG D1 AND D8 21 DAY CYCLE
     Route: 042
     Dates: start: 20211018, end: 20231121
  2. POTASSIUM [Concomitant]
     Active Substance: POTASSIUM
  3. MAGNESIUM [Concomitant]
     Active Substance: MAGNESIUM

REACTIONS (1)
  - Pneumonia pneumococcal [Recovered/Resolved]

NARRATIVE: CASE EVENT DATE: 20231123
